FAERS Safety Report 11654568 (Version 1)
Quarter: 2015Q4

REPORT INFORMATION
  Report Type: Spontaneous
  Country: KR (occurrence: KR)
  Receive Date: 20151023
  Receipt Date: 20151023
  Transmission Date: 20160304
  Serious: Yes (Death, Other)
  Sender: FDA-Public Use
  Company Number: KR-ACCORD-034172

PATIENT
  Age: 15 Year
  Sex: Male

DRUGS (8)
  1. HYDROCORTISONE. [Suspect]
     Active Substance: HYDROCORTISONE
     Indication: BURKITT^S LEUKAEMIA
     Dosage: FOLLOWED BY A TOTAL OF 8 ROUNDS OF INTRATHECAL TRIPLE THERAPY OF 15 MG OF HYDROCORTISONE
     Route: 037
  2. ETOPOSIDE. [Suspect]
     Active Substance: ETOPOSIDE
     Indication: BURKITT^S LEUKAEMIA
     Dosage: 1 CYCLE OF ETOPOSIDE WITH?HIGH-DOSE CYTARABINE
  3. PREDNISOLONE. [Suspect]
     Active Substance: PREDNISOLONE
     Indication: BURKITT^S LEUKAEMIA
     Dosage: 1 CYCLE OF CYCLOPHOSPHAMIDE, VINCRISTINE, AND PREDNISOLONE
  4. DOXORUBICIN [Suspect]
     Active Substance: DOXORUBICIN
     Indication: BURKITT^S LEUKAEMIA
     Dosage: 2 CYCLES OF CYCLOPHOSPHAMIDE, VINCRISTINE, PREDNISOLONE, DOXORUBICIN,?AND METHOTREXATE
  5. VINCRISTINE [Suspect]
     Active Substance: VINCRISTINE
     Indication: BURKITT^S LEUKAEMIA
     Dosage: 1 CYCLE OF CYCLOPHOSPHAMIDE, VINCRISTINE, AND PREDNISOLONE
  6. CYTARABINE/CYTARABINE HYDROCHLORIDE/CYTARABINE OCFOSFATE [Suspect]
     Active Substance: CYTARABINE
     Indication: BURKITT^S LEUKAEMIA
     Dosage: FOLLOWED BY TOTAL OF 8 ROUNDS OF INTRATHECAL TRIPLE THERAPY WITH 30 MG OF CYTARABINE
     Route: 037
  7. CYCLOPHOSPHAMIDE/CYCLOPHOSPHAMIDE MONOHYDRATE [Suspect]
     Active Substance: CYCLOPHOSPHAMIDE
     Indication: BURKITT^S LEUKAEMIA
     Dosage: 1 CYCLE OF CYCLOPHOSPHAMIDE, VINCRISTINE, AND PREDNISOLONE
  8. METHOTREXATE [Suspect]
     Active Substance: METHOTREXATE
     Indication: BURKITT^S LEUKAEMIA
     Dosage: TOTAL OF 8 ROUNDS OF INTRATHECAL TRIPLE THERAPY
     Route: 037

REACTIONS (4)
  - Pneumonia [Fatal]
  - Respiratory failure [Fatal]
  - Peripheral sensorimotor neuropathy [Unknown]
  - VIIth nerve paralysis [None]
